FAERS Safety Report 7017629-7 (Version None)
Quarter: 2010Q3

REPORT INFORMATION
  Report Type: 
  Country: None (occurrence: None)
  Receive Date: 20100927
  Receipt Date: 20100927
  Transmission Date: 20110219
  Serious: Yes (Other)
  Sender: FDA-Public Use
  Company Number: None

PATIENT
  Age: 30 Year
  Sex: Female
  Weight: 68.0396 kg

DRUGS (1)
  1. TESTOSTERONE CYPIONATE [Suspect]
     Indication: HORMONE REPLACEMENT THERAPY
     Dosage: 100MG/ML BI-WEEKLY IM
     Route: 030
     Dates: start: 20100730, end: 20100910

REACTIONS (4)
  - DRUG DISPENSING ERROR [None]
  - DYSPHONIA [None]
  - MEDICATION ERROR [None]
  - PRODUCT LABEL ON WRONG PRODUCT [None]
